FAERS Safety Report 6577071-X (Version None)
Quarter: 2010Q1

REPORT INFORMATION
  Report Type: 
  Country: None (occurrence: None)
  Receive Date: 20100210
  Receipt Date: 20100128
  Transmission Date: 20100710
  Serious: Yes (Hospitalization)
  Sender: FDA-Public Use
  Company Number: FR-B.I. PHARMACEUTICALS,INC./RIDGEFIELD-2010-FF-00088FF

PATIENT
  Sex: Female
  Weight: 49.1 kg

DRUGS (6)
  1. SIFROL [Suspect]
     Dosage: 3 ANZ
     Route: 048
  2. STALEVO 100 [Suspect]
     Dosage: 800 MG
     Route: 048
  3. SINEMET [Suspect]
     Dosage: 200MGLP +100MG
     Route: 048
  4. MORPHINE [Suspect]
     Indication: BACK PAIN
     Route: 048
     Dates: start: 20091201, end: 20091201
  5. PROZAC [Concomitant]
     Dosage: 20 MG
     Route: 048
  6. RIVOTRIL [Concomitant]
     Route: 048

REACTIONS (6)
  - AGITATION [None]
  - HALLUCINATION [None]
  - HYPOTHYROIDISM [None]
  - OSTEOPOROTIC FRACTURE [None]
  - SUICIDE ATTEMPT [None]
  - TREMOR [None]
